FAERS Safety Report 4435419-6 (Version None)
Quarter: 2004Q3

REPORT INFORMATION
  Report Type: 
  Country: None (occurrence: None)
  Receive Date: 20040826
  Receipt Date: 20040819
  Transmission Date: 20050211
  Serious: Yes (Life-Threatening)
  Sender: FDA-Public Use
  Company Number: 2004229669DE

PATIENT
  Age: 66 Year
  Sex: Female
  Weight: 69 kg

DRUGS (3)
  1. FARMORUBICIN (EPIRUBICIN HYDROCHLORIDE) SOLUTION, STERILE [Suspect]
     Indication: BREAST CANCER
     Dosage: 106 MG, CYCLIC (DAY 1, DAY 8), IV
     Route: 042
     Dates: start: 20040804, end: 20040811
  2. FLUOROURACIL [Suspect]
     Indication: BREAST CANCER
     Dosage: 890 MG  CYCLIC (DAY1,  DAY 8), IV
     Route: 042
     Dates: start: 20040804, end: 20040811
  3. CYCLOPHOSPHAMIDE [Suspect]
     Indication: BREAST CANCER
     Dosage: 150 MG, CYCLIC (DAY 1 3), ORAL
     Route: 048
     Dates: start: 20040804, end: 20040816

REACTIONS (7)
  - GENERAL PHYSICAL HEALTH DETERIORATION [None]
  - HAEMOGLOBIN DECREASED [None]
  - INFECTION [None]
  - LEUKOPENIA [None]
  - LYMPHADENOPATHY [None]
  - NEUTROPENIA [None]
  - PLATELET COUNT DECREASED [None]
